FAERS Safety Report 6274319-6 (Version None)
Quarter: 2009Q3

REPORT INFORMATION
  Report Type: 
  Country: None (occurrence: None)
  Receive Date: 20090720
  Receipt Date: 20090706
  Transmission Date: 20100115
  Serious: Yes (Hospitalization)
  Sender: FDA-Public Use
  Company Number: PL-MEDIMMUNE-MEDI-0008463

PATIENT
  Sex: Male
  Weight: 6.3 kg

DRUGS (2)
  1. SYNAGIS [Suspect]
     Indication: BRONCHOPULMONARY DYSPLASIA
     Route: 030
     Dates: start: 20090130, end: 20090226
  2. SYNAGIS [Suspect]
     Route: 030
     Dates: start: 20090327

REACTIONS (5)
  - CELLULITIS [None]
  - INGUINAL HERNIA, OBSTRUCTIVE [None]
  - INJECTION SITE ERYTHEMA [None]
  - INJECTION SITE OEDEMA [None]
  - URINARY TRACT INFECTION [None]
